FAERS Safety Report 23991002 (Version 1)
Quarter: 2024Q2

REPORT INFORMATION
  Report Type: Spontaneous
  Country: PL (occurrence: None)
  Receive Date: 20240619
  Receipt Date: 20240619
  Transmission Date: 20240715
  Serious: Yes (Other)
  Sender: FDA-Public Use
  Company Number: 2024A135347

PATIENT
  Age: 75 Year
  Sex: Female

DRUGS (1)
  1. TAGRISSO [Suspect]
     Active Substance: OSIMERTINIB
     Indication: Lung neoplasm malignant
     Dosage: 1 TABLET A DAY; ONGOING THERAPY
     Route: 048
     Dates: start: 201906

REACTIONS (2)
  - Diarrhoea [Recovering/Resolving]
  - Decubitus ulcer [Recovering/Resolving]
